FAERS Safety Report 12714395 (Version 1)
Quarter: 2016Q3

REPORT INFORMATION
  Report Type: Spontaneous
  Country: US (occurrence: US)
  Receive Date: 20160905
  Receipt Date: 20160905
  Transmission Date: 20161109
  Serious: No
  Sender: FDA-Public Use
  Company Number: US-JAZZ-2016-US-008893

PATIENT
  Sex: Female

DRUGS (14)
  1. METHYLPREDNISOLONE. [Concomitant]
     Active Substance: METHYLPREDNISOLONE
  2. MODAFINIL. [Concomitant]
     Active Substance: MODAFINIL
  3. XYREM [Suspect]
     Active Substance: SODIUM OXYBATE
     Indication: NARCOLEPSY
     Dosage: 2.25 G, BID
     Route: 048
     Dates: start: 201601, end: 201603
  4. CLARITHROMYCIN. [Concomitant]
     Active Substance: CLARITHROMYCIN
  5. FLUTICASONE PROPIONATE. [Concomitant]
     Active Substance: FLUTICASONE PROPIONATE
  6. OMEPRAZOLE. [Concomitant]
     Active Substance: OMEPRAZOLE
  7. XYREM [Suspect]
     Active Substance: SODIUM OXYBATE
     Dosage: 4.5 G, FIRST DOSE
     Route: 048
     Dates: start: 201603
  8. XYREM [Suspect]
     Active Substance: SODIUM OXYBATE
     Dosage: 2.25 G. SECOND DOSE
     Route: 048
     Dates: start: 201603
  9. METHYLPHENIDATE. [Concomitant]
     Active Substance: METHYLPHENIDATE
  10. WELLBUTRIN [Concomitant]
     Active Substance: BUPROPION HYDROCHLORIDE
  11. PLAQUENIL [Concomitant]
     Active Substance: HYDROXYCHLOROQUINE SULFATE
  12. SPIRONOLACTONE. [Concomitant]
     Active Substance: SPIRONOLACTONE
  13. SUMATRIPTAN. [Concomitant]
     Active Substance: SUMATRIPTAN
  14. SULFAZINE [Concomitant]
     Active Substance: SULFASALAZINE

REACTIONS (2)
  - Nausea [Unknown]
  - Weight decreased [Unknown]

NARRATIVE: CASE EVENT DATE: 2016
